FAERS Safety Report 23938996 (Version 1)
Quarter: 2024Q2

REPORT INFORMATION
  Report Type: Spontaneous
  Country: US (occurrence: US)
  Receive Date: 20240604
  Receipt Date: 20240604
  Transmission Date: 20240715
  Serious: Yes (Other)
  Sender: FDA-Public Use
  Company Number: US-IGSA-BIG0029211

PATIENT
  Age: 41 Year
  Sex: Male

DRUGS (2)
  1. ALBUMIN HUMAN [Suspect]
     Active Substance: ALBUMIN HUMAN
     Indication: Peripheral swelling
     Dosage: 112.5?162.5 GRAM, QD
     Route: 065
  2. FUROSEMIDE [Concomitant]
     Active Substance: FUROSEMIDE

REACTIONS (3)
  - Transfusion-related acute lung injury [Recovering/Resolving]
  - Acute respiratory failure [Recovering/Resolving]
  - Pulmonary oedema [Recovering/Resolving]
